FAERS Safety Report 17061232 (Version 3)
Quarter: 2020Q1

REPORT INFORMATION
  Report Type: Spontaneous
  Country: US (occurrence: US)
  Receive Date: 20191121
  Receipt Date: 20200103
  Transmission Date: 20200409
  Serious: No
  Sender: FDA-Public Use
  Company Number: US-ARRAY-2019-06531

PATIENT

DRUGS (4)
  1. BRAFTOVI [Suspect]
     Active Substance: ENCORAFENIB
     Indication: NEOPLASM MALIGNANT
  2. MEKTOVI [Suspect]
     Active Substance: BINIMETINIB
     Indication: NEUROENDOCRINE TUMOUR
     Dosage: 45 MG, BID
     Route: 048
     Dates: start: 20191016
  3. BRAFTOVI [Suspect]
     Active Substance: ENCORAFENIB
     Indication: NEUROENDOCRINE TUMOUR
     Dosage: 450 MG, QD
     Route: 048
     Dates: start: 20191016
  4. MEKTOVI [Suspect]
     Active Substance: BINIMETINIB
     Indication: NEOPLASM MALIGNANT

REACTIONS (5)
  - Diarrhoea [Unknown]
  - Product use complaint [Unknown]
  - Product use in unapproved indication [Unknown]
  - Vomiting [Unknown]
  - Drug intolerance [Unknown]

NARRATIVE: CASE EVENT DATE: 201910
